FAERS Safety Report 5685067-5 (Version None)
Quarter: 2008Q1

REPORT INFORMATION
  Report Type: 
  Country: None (occurrence: None)
  Receive Date: 20080328
  Receipt Date: 20000417
  Transmission Date: 20080703
  Serious: Yes (Death, Other)
  Sender: FDA-Public Use
  Company Number: HU-ROCHE-234772

PATIENT
  Age: 34 Year
  Sex: Male

DRUGS (2)
  1. DIAZEPAM [Suspect]
     Indication: SEDATION
     Route: 042
     Dates: start: 19991205, end: 19991205
  2. ALCOHOL [Suspect]
     Indication: DRUG USE FOR UNKNOWN INDICATION
     Route: 065

REACTIONS (5)
  - AGGRESSION [None]
  - ASPHYXIA [None]
  - DEATH [None]
  - PULSE ABSENT [None]
  - RESPIRATORY ARREST [None]
